FAERS Safety Report 4723057-7 (Version None)
Quarter: 2005Q3

REPORT INFORMATION
  Report Type: 
  Country: None (occurrence: None)
  Receive Date: 20050719
  Receipt Date: 20040721
  Transmission Date: 20060218
  Serious: Yes (Hospitalization)
  Sender: FDA-Public Use
  Company Number: 2004219494US

PATIENT
  Age: 81 Year
  Sex: Female

DRUGS (2)
  1. CELEBREX [Suspect]
     Indication: OSTEOARTHRITIS
     Dosage: 200 MG, QD
  2. ASPIRIN [Concomitant]

REACTIONS (1)
  - GASTROINTESTINAL ULCER HAEMORRHAGE [None]
